FAERS Safety Report 4284680-X (Version None)
Quarter: 2004Q1

REPORT INFORMATION
  Report Type: 
  Country: None (occurrence: None)
  Receive Date: 20040203
  Receipt Date: 20040129
  Transmission Date: 20041129
  Serious: Yes (Other)
  Sender: FDA-Public Use
  Company Number: WAES 0401USA02168

PATIENT
  Age: 50 Year
  Sex: Male

DRUGS (1)
  1. VIOXX [Suspect]
     Indication: BACK PAIN
     Route: 048

REACTIONS (4)
  - ACCIDENT AT WORK [None]
  - CORONARY ARTERY OCCLUSION [None]
  - INJURY [None]
  - MYOCARDIAL INFARCTION [None]
